FAERS Safety Report 8162839-9 (Version None)
Quarter: 2012Q1

REPORT INFORMATION
  Report Type: 
  Country: None (occurrence: None)
  Receive Date: 20120224
  Receipt Date: 20120214
  Transmission Date: 20120608
  Serious: Yes (Life-Threatening, Hospitalization)
  Sender: FDA-Public Use
  Company Number: FR-MILLENNIUM PHARMACEUTICALS, INC.-2011-04197

PATIENT

DRUGS (15)
  1. VELCADE [Suspect]
     Dosage: 2.3 UNK, UNK
     Route: 042
     Dates: start: 20110905, end: 20110919
  2. INDAPAMIDE [Concomitant]
  3. NEXIUM [Concomitant]
  4. VELCADE [Suspect]
     Indication: MULTIPLE MYELOMA
     Dosage: 2.3 MG, UNK
     Route: 042
     Dates: start: 20110816, end: 20110826
  5. DEXAMETHASONE [Suspect]
     Indication: MULTIPLE MYELOMA
     Dosage: 20 MG, UNK
     Route: 048
     Dates: start: 20110812, end: 20110827
  6. TRAMADOL HCL [Suspect]
     Indication: PAIN
     Dosage: 20 MG, UNK
     Route: 048
     Dates: start: 20110811, end: 20110831
  7. TEMERIT                            /01339101/ [Concomitant]
     Indication: ATRIAL FIBRILLATION
  8. POLYETHYLENE GLYCOL [Concomitant]
     Indication: DYSLIPIDAEMIA
  9. CORDARONE [Concomitant]
     Indication: ATRIAL FIBRILLATION
  10. ACETAMINOPHEN [Concomitant]
     Indication: PAIN
  11. CRESTOR [Concomitant]
     Indication: ATRIAL FIBRILLATION
  12. PENTOXIFYLLINE [Concomitant]
  13. LORAZEPAM [Suspect]
     Indication: INSOMNIA
     Dosage: 2.5 MG, UNK
     Route: 048
     Dates: start: 20110809, end: 20110831
  14. ESCITALOPRAM OXALATE [Concomitant]
     Indication: DEPRESSION
  15. FLUINDIONE [Concomitant]

REACTIONS (6)
  - CONFUSIONAL STATE [None]
  - ABSCESS [None]
  - SEPTIC SHOCK [None]
  - PSYCHOMOTOR RETARDATION [None]
  - GENERAL PHYSICAL HEALTH DETERIORATION [None]
  - CHEST PAIN [None]
